FAERS Safety Report 7461708-7 (Version None)
Quarter: 2011Q2

REPORT INFORMATION
  Report Type: 
  Country: None (occurrence: None)
  Receive Date: 20110506
  Receipt Date: 20110407
  Transmission Date: 20111010
  Serious: Yes (Other)
  Sender: FDA-Public Use
  Company Number: US-BAYER-2011-037593

PATIENT
  Age: 36 Year
  Sex: Female
  Weight: 92 kg

DRUGS (7)
  1. IBUPROFEN [Concomitant]
     Indication: PREMENSTRUAL SYNDROME
     Dosage: UNK UNK, PRN
     Dates: start: 20020101
  2. PROZAC [Concomitant]
     Indication: PREMENSTRUAL SYNDROME
     Dosage: 40 MG, DAILY
     Dates: start: 20020101
  3. YAZ [Suspect]
     Indication: PREMENSTRUAL SYNDROME
     Dosage: UNK
     Route: 048
     Dates: start: 20070201, end: 20090101
  4. YASMIN [Suspect]
     Route: 048
  5. FISH OIL [Concomitant]
     Indication: BLOOD CHOLESTEROL INCREASED
     Dosage: UNK UNK, PRN
     Dates: start: 20070101
  6. YAZ [Suspect]
  7. XANAX [Concomitant]
     Indication: ANXIETY
     Dosage: 0.5 MG, PRN
     Dates: start: 20060101

REACTIONS (3)
  - GALLBLADDER DISORDER [None]
  - CHOLECYSTITIS CHRONIC [None]
  - BILIARY DYSKINESIA [None]
